FAERS Safety Report 8516819-1 (Version None)
Quarter: 2012Q3

REPORT INFORMATION
  Report Type: 
  Country: None (occurrence: None)
  Receive Date: 20120706
  Receipt Date: 20120620
  Transmission Date: 20120928
  Serious: Yes (Other)
  Sender: FDA-Public Use
  Company Number: TPA2012A03672

PATIENT
  Age: 70 Year
  Sex: Male

DRUGS (16)
  1. ROCEPHIN [Suspect]
     Indication: SEPSIS
     Dates: start: 20120501, end: 20120530
  2. HEPARIN SODIUM [Concomitant]
  3. VERAPAMIL HYDROCHLORIDE [Concomitant]
  4. GASCON (DIMETICONE) [Concomitant]
  5. SOLITA-T NO.1 (ELECTROLYTES NOS) [Concomitant]
  6. ALDACTONE [Concomitant]
  7. FEBURIC (FEBUXOSTAT) [Suspect]
     Indication: HYPERURICAEMIA
     Dosage: 10 MG (10 MG, 1-2) 2 GM PER ORAL; 10 MG (10 MG, 1 IN 1 D) . 20 MG (20 MG. 1 IN 1 D)
     Route: 048
     Dates: start: 20120530, end: 20120530
  8. FEBURIC (FEBUXOSTAT) [Suspect]
     Indication: HYPERURICAEMIA
     Dosage: 10 MG (10 MG, 1-2) 2 GM PER ORAL; 10 MG (10 MG, 1 IN 1 D) . 20 MG (20 MG. 1 IN 1 D)
     Route: 048
     Dates: start: 20120522, end: 20120529
  9. BAYCARON (MEFRUSIDE) [Concomitant]
  10. ALINAMIN-F (FURSULTIMINE HYDROCHLORIDE) [Concomitant]
  11. VANCOMYCIN [Suspect]
     Indication: SEPSIS
     Dosage: 500 MG, 500 MG (500 MG, 1 IN 1 D) DOSE REDUCED (20 DAYS)
     Dates: start: 20120502
  12. VANCOMYCIN [Suspect]
     Indication: SEPSIS
     Dosage: 500 MG, 500 MG (500 MG, 1 IN 1 D) DOSE REDUCED (20 DAYS)
     Dates: start: 20120523, end: 20120524
  13. LASIX [Concomitant]
  14. CINAL (ASCORBIC ACID, CALCIUM PANTOTHENATE) [Concomitant]
  15. WARFARIN SODIUM [Concomitant]
  16. PANTOSIN (PANTERHINE) [Concomitant]

REACTIONS (9)
  - RENAL IMPAIRMENT [None]
  - RASH ERYTHEMATOUS [None]
  - SEPTIC SHOCK [None]
  - THROMBOCYTOPENIA [None]
  - PYREXIA [None]
  - ANAEMIA [None]
  - EOSINOPHILIA [None]
  - DRUG ERUPTION [None]
  - OEDEMA PERIPHERAL [None]
